FAERS Safety Report 8346166 (Version 2)
Quarter: 2013Q2

REPORT INFORMATION
  Report Type: Spontaneous
  Country: MX (occurrence: MX)
  Receive Date: 20120120
  Receipt Date: 20130412
  Transmission Date: 20140414
  Serious: Yes (Death, Hospitalization)
  Sender: FDA-Public Use
  Company Number: PHHY2012MX004560

PATIENT
  Age: 80 Year
  Sex: Female

DRUGS (5)
  1. EXFORGE [Suspect]
     Indication: HYPERTENSION
     Dosage: 1 DF (160/5 MG), DAILY
     Dates: start: 201007, end: 20110902
  2. EUTIROX [Concomitant]
     Indication: THYROID DISORDER
     Dosage: 1 UKN, DAILY
  3. CORTISONE [Concomitant]
     Dosage: UNK UKN, UNK
  4. BI-EUGLUCON [Concomitant]
     Indication: DIABETES MELLITUS
     Dosage: UNK UKN, UNK
  5. OMEPRAZOLE [Concomitant]
     Indication: GASTRIC DISORDER
     Dosage: UNK UKN, UNK

REACTIONS (3)
  - Diabetic complication [Fatal]
  - Abdominal adhesions [Fatal]
  - Abdominal pain [Fatal]
